FAERS Safety Report 6593298-5 (Version None)
Quarter: 2010Q1

REPORT INFORMATION
  Report Type: 
  Country: None (occurrence: None)
  Receive Date: 20100222
  Receipt Date: 20090217
  Transmission Date: 20100710
  Serious: Yes (Other)
  Sender: FDA-Public Use
  Company Number: US-BRISTOL-MYERS SQUIBB COMPANY-14456958

PATIENT
  Age: 45 Year
  Sex: Female

DRUGS (4)
  1. ORENCIA [Suspect]
     Indication: RHEUMATOID ARTHRITIS
     Dosage: 1 DOSAGE FORM = 2 VIALS
     Route: 042
     Dates: start: 20060316, end: 20081112
  2. ARAVA [Concomitant]
  3. PLAQUENIL [Concomitant]
     Dates: end: 20081210
  4. MELOXICAM [Concomitant]

REACTIONS (1)
  - BREAST CANCER [None]
